FAERS Safety Report 20049498 (Version 2)
Quarter: 2021Q4

REPORT INFORMATION
  Report Type: Spontaneous
  Country: US (occurrence: US)
  Receive Date: 20211109
  Receipt Date: 20211202
  Transmission Date: 20220303
  Serious: Yes (Other)
  Sender: FDA-Public Use
  Company Number: US-PFIZER INC-202101488563

PATIENT
  Age: 42 Year
  Sex: Female

DRUGS (2)
  1. XELJANZ XR [Suspect]
     Active Substance: TOFACITINIB CITRATE
     Indication: Rheumatoid arthritis
     Dosage: 11 MG, 1X/DAY
     Route: 048
     Dates: start: 201711
  2. METHOTREXATE SODIUM [Suspect]
     Active Substance: METHOTREXATE SODIUM
     Indication: Rheumatoid arthritis
     Dosage: 10 MG, EVERY 2 WEEKS

REACTIONS (9)
  - Rheumatoid arthritis [Unknown]
  - Condition aggravated [Unknown]
  - Drug ineffective [Unknown]
  - Diarrhoea [Unknown]
  - Mouth ulceration [Unknown]
  - Nausea [Unknown]
  - Vomiting [Unknown]
  - Dry mouth [Unknown]
  - Pharyngitis [Unknown]
